FAERS Safety Report 24544351 (Version 1)
Quarter: 2024Q4

REPORT INFORMATION
  Report Type: Spontaneous
  Country: US (occurrence: None)
  Receive Date: 20241023
  Receipt Date: 20241023
  Transmission Date: 20250114
  Serious: No
  Sender: Public
  Company Number: None

PATIENT
  Age: 76 Year
  Sex: Female

DRUGS (2)
  1. LENALIDOMIDE [Suspect]
     Active Substance: LENALIDOMIDE
     Dosage: FREQUENCY : DAILY;?
     Route: 048
     Dates: start: 202406
  2. DEXAMETHASONE [Concomitant]

REACTIONS (2)
  - Haemoglobin decreased [None]
  - Therapy interrupted [None]

NARRATIVE: CASE EVENT DATE: 20241017
